FAERS Safety Report 19217624 (Version 1)
Quarter: 2021Q2

REPORT INFORMATION
  Report Type: Spontaneous
  Country: US (occurrence: US)
  Receive Date: 20210505
  Receipt Date: 20210505
  Transmission Date: 20210717
  Serious: Yes (Life-Threatening)
  Sender: FDA-Public Use
  Company Number: None

PATIENT
  Age: 6 Year
  Sex: Male
  Weight: 20.25 kg

DRUGS (1)
  1. CHILDRENS TYLENOL [Suspect]
     Active Substance: ACETAMINOPHEN
     Indication: EAR PAIN
     Route: 048
     Dates: start: 20210219, end: 20210219

REACTIONS (2)
  - Anaphylactic reaction [None]
  - Suspected product contamination [None]

NARRATIVE: CASE EVENT DATE: 20210219
